FAERS Safety Report 4754262-1 (Version None)
Quarter: 2005Q3

REPORT INFORMATION
  Report Type: 
  Country: None (occurrence: None)
  Receive Date: 20050817
  Receipt Date: 20050804
  Transmission Date: 20060218
  Serious: Yes (Hospitalization)
  Sender: FDA-Public Use
  Company Number: SAGL-ZLB/05/73/GFR

PATIENT
  Age: 28 Year
  Sex: Female
  Weight: 58 kg

DRUGS (1)
  1. SANDOGLOBULIN [Suspect]
     Indication: IMMUNODEFICIENCY
     Dosage: 10 G, ONCE, I.V.
     Route: 042
     Dates: start: 20050701, end: 20050701

REACTIONS (5)
  - BRONCHOSPASM [None]
  - DYSPNOEA [None]
  - INFUSION RELATED REACTION [None]
  - OEDEMA MUCOSAL [None]
  - RESTLESSNESS [None]
